FAERS Safety Report 4860866-8 (Version None)
Quarter: 2005Q4

REPORT INFORMATION
  Report Type: 
  Country: None (occurrence: None)
  Receive Date: 20051220
  Receipt Date: 20030821
  Transmission Date: 20060501
  Serious: Yes (Hospitalization, Other)
  Sender: FDA-Public Use
  Company Number: CA-BRISTOL-MYERS SQUIBB COMPANY-12363966

PATIENT
  Age: 82 Year
  Sex: Male
  Weight: 59 kg

DRUGS (10)
  1. TEQUIN [Suspect]
     Indication: PNEUMONIA
     Route: 048
     Dates: start: 20030815, end: 20030820
  2. TEQUIN [Suspect]
     Indication: PNEUMONIA
     Route: 042
     Dates: start: 20030814, end: 20030814
  3. METFORMIN HCL [Concomitant]
     Dosage: 500 MG EVERY AM AND 250 MG AT DINNERTIME.
  4. ASPIRIN [Concomitant]
  5. ELTROXIN [Concomitant]
  6. LIPITOR [Concomitant]
     Dosage: AT BEDTIME
  7. PANTOPRAZOLE SODIUM [Concomitant]
  8. GLUCARON [Concomitant]
     Dosage: 3 MG IN THE AM, 4 MG AT NOON, 3 MG AT DINNER, AND 3 MG AT BEDTIME.
  9. GLUCONORM [Concomitant]
  10. TIMOLOL MALEATE [Concomitant]
     Route: 047

REACTIONS (3)
  - BLOOD CREATININE INCREASED [None]
  - HYPERGLYCAEMIA [None]
  - HYPOGLYCAEMIA [None]
